FAERS Safety Report 18193038 (Version 2)
Quarter: 2020Q3

REPORT INFORMATION
  Report Type: Spontaneous
  Country: US (occurrence: US)
  Receive Date: 20200825
  Receipt Date: 20200827
  Transmission Date: 20201103
  Serious: Yes (Other)
  Sender: FDA-Public Use
  Company Number: US-009507513-2008USA010378

PATIENT
  Age: 23 Year
  Sex: Female
  Weight: 59.41 kg

DRUGS (1)
  1. NEXPLANON [Suspect]
     Active Substance: ETONOGESTREL
     Dosage: IMPLANT IN RIGHT ARM (NON?DOMINANT ARM), 1 EVERY 3 YEARS
     Route: 059
     Dates: start: 2017, end: 20200819

REACTIONS (5)
  - Circumstance or information capable of leading to medication error [Unknown]
  - Device dislocation [Recovered/Resolved]
  - Surgery [Unknown]
  - Complication of device removal [Recovered/Resolved]
  - Incorrect product administration duration [Unknown]

NARRATIVE: CASE EVENT DATE: 2020
